FAERS Safety Report 8609359-2 (Version None)
Quarter: 2012Q3

REPORT INFORMATION
  Report Type: 
  Country: None (occurrence: None)
  Receive Date: 20120821
  Receipt Date: 20120813
  Transmission Date: 20120928
  Serious: Yes (Other)
  Sender: FDA-Public Use
  Company Number: US-US-EMD SERONO, INC.-7154561

PATIENT
  Sex: Female

DRUGS (3)
  1. LAMICTAL [Concomitant]
     Indication: BURNING SENSATION
  2. FLU VACCINATION [Suspect]
     Indication: INFLUENZA
  3. REBIF [Suspect]
     Indication: MULTIPLE SCLEROSIS
     Route: 058
     Dates: start: 20100210

REACTIONS (4)
  - SEXUAL DYSFUNCTION [None]
  - MYELITIS TRANSVERSE [None]
  - CYSTITIS [None]
  - INJECTION SITE HAEMATOMA [None]
